FAERS Safety Report 7791571-6 (Version None)
Quarter: 2011Q3

REPORT INFORMATION
  Report Type: 
  Country: None (occurrence: None)
  Receive Date: 20110930
  Receipt Date: 20110930
  Transmission Date: 20111222
  Serious: Yes (Other)
  Sender: FDA-Public Use
  Company Number: None

PATIENT
  Sex: Female
  Weight: 81.6475 kg

DRUGS (1)
  1. RECLAST [Suspect]
     Indication: OSTEOPENIA
     Dosage: 5 MG A YEAR IV
     Route: 042

REACTIONS (1)
  - HYPOTENSION [None]
